FAERS Safety Report 5218470-8 (Version None)
Quarter: 2007Q1

REPORT INFORMATION
  Report Type: 
  Country: None (occurrence: None)
  Receive Date: 20061201
  Receipt Date: 20060413
  Transmission Date: 20070707
  Serious: Yes (Other)
  Sender: FDA-Public Use
  Company Number: SUS1-2006-00404

PATIENT
  Age: 13 Year
  Sex: Male

DRUGS (4)
  1. ADDERALL XR 10 [Suspect]
     Dates: end: 20060101
  2. PROZAC [Concomitant]
  3. SEROQUEL [Concomitant]
  4. ANAFRANIL [Concomitant]

REACTIONS (1)
  - CONVULSION [None]
